FAERS Safety Report 7460274-X (Version None)
Quarter: 2011Q2

REPORT INFORMATION
  Report Type: 
  Country: None (occurrence: None)
  Receive Date: 20110427
  Receipt Date: 20110418
  Transmission Date: 20111010
  Serious: Yes (Hospitalization, Other)
  Sender: FDA-Public Use
  Company Number: 2010SP019265

PATIENT
  Age: 51 Year
  Sex: Female
  Weight: 104.7809 kg

DRUGS (6)
  1. BENADRYL [Concomitant]
  2. NUVARING [Suspect]
     Indication: CONTRACEPTION
     Dosage: ; VAG
     Route: 067
     Dates: start: 20030101, end: 20030101
  3. NUVARING [Suspect]
     Indication: CONTRACEPTION
     Dosage: ; VAG
     Route: 067
     Dates: start: 20060101, end: 20080401
  4. ONE-A-DAY MULTIVITAMINS (MULTIVITAMINS) [Concomitant]
  5. DIGESTIVE ENZYMES [Concomitant]
  6. PRILOSEC [Concomitant]

REACTIONS (5)
  - CHOLECYSTECTOMY [None]
  - DEEP VEIN THROMBOSIS [None]
  - OVARIAN CYST [None]
  - METRORRHAGIA [None]
  - MENORRHAGIA [None]
